FAERS Safety Report 16805175 (Version 1)
Quarter: 2019Q3

REPORT INFORMATION
  Report Type: Spontaneous
  Country: US (occurrence: US)
  Receive Date: 20190913
  Receipt Date: 20190913
  Transmission Date: 20191005
  Serious: No
  Sender: FDA-Public Use
  Company Number: US-AMGEN-USASP2019147059

PATIENT
  Age: 78 Year
  Sex: Female

DRUGS (1)
  1. REPATHA [Suspect]
     Active Substance: EVOLOCUMAB
     Indication: DRUG INTOLERANCE
     Dosage: 140 MILLIGRAM, Q2WK
     Route: 065
     Dates: start: 20190819

REACTIONS (4)
  - Upper-airway cough syndrome [Unknown]
  - Pruritus [Unknown]
  - Incorrect disposal of product [Unknown]
  - Rhinorrhoea [Unknown]
